FAERS Safety Report 16001921 (Version 1)
Quarter: 2019Q1

REPORT INFORMATION
  Report Type: Spontaneous
  Country: PT (occurrence: PT)
  Receive Date: 20190225
  Receipt Date: 20190225
  Transmission Date: 20190418
  Serious: Yes (Other)
  Sender: FDA-Public Use
  Company Number: PT-PFIZER INC-2019050088

PATIENT
  Age: 62 Year
  Sex: Male

DRUGS (3)
  1. GEMCITABINE HYDROCHLORIDE. [Suspect]
     Active Substance: GEMCITABINE HYDROCHLORIDE
     Indication: METASTASES TO LYMPH NODES
     Dosage: UNK, CYCLIC
     Route: 065
     Dates: start: 20170227, end: 20170619
  2. CISPLATINA TEVA [Suspect]
     Active Substance: CISPLATIN
     Indication: METASTASES TO LYMPH NODES
     Dosage: UNK, CYCLIC
     Route: 042
     Dates: start: 20170227, end: 20170619
  3. CAVERJECT [Concomitant]
     Active Substance: ALPROSTADIL
     Indication: ERECTILE DYSFUNCTION
     Dosage: 0.01 MG / 1 ML AND THEN 0.02 MG / 1 ML
     Route: 017
     Dates: start: 201805

REACTIONS (2)
  - Neurotoxicity [Unknown]
  - Thrombocytopenia [Unknown]
